FAERS Safety Report 6764196-9 (Version None)
Quarter: 2010Q2

REPORT INFORMATION
  Report Type: 
  Country: None (occurrence: None)
  Receive Date: 20100610
  Receipt Date: 20100609
  Transmission Date: 20101027
  Serious: Yes (Hospitalization)
  Sender: FDA-Public Use
  Company Number: B0629304A

PATIENT
  Sex: Male

DRUGS (3)
  1. AUGMENTIN '125' [Suspect]
     Indication: ERYSIPELAS
     Dosage: 3G PER DAY
     Route: 048
     Dates: start: 20091119, end: 20091121
  2. TAHOR [Concomitant]
     Dosage: 10MG UNKNOWN
     Route: 065
  3. METFORMIN HCL [Concomitant]
     Route: 065

REACTIONS (3)
  - DRUG HYPERSENSITIVITY [None]
  - PRURITUS [None]
  - RASH GENERALISED [None]
